FAERS Safety Report 7395330 (Version 4)
Quarter: 2013Q4

REPORT INFORMATION
  Report Type: Spontaneous
  Country: US (occurrence: US)
  Receive Date: 20100521
  Receipt Date: 20131227
  Transmission Date: 20140711
  Serious: Yes (Hospitalization)
  Sender: FDA-Public Use
  Company Number: US-BAYER-201022917NA

PATIENT
  Age: 33 Year
  Sex: Female
  Weight: 95 kg

DRUGS (12)
  1. YAZ [Suspect]
     Indication: POLYCYSTIC OVARIES
     Dosage: UNK
     Route: 048
     Dates: start: 200610, end: 200705
  2. YAZ [Suspect]
     Indication: PELVIC PAIN
  3. YASMIN [Suspect]
     Indication: POLYCYSTIC OVARIES
     Dosage: UNK
     Route: 048
     Dates: start: 200212, end: 2003
  4. YASMIN [Suspect]
     Indication: PELVIC PAIN
  5. ZESTRIL [Concomitant]
  6. LISINOPRIL [Concomitant]
     Dosage: UNK
     Dates: start: 20100301
  7. HYDROCHLOROTHIAZIDE [Concomitant]
     Dosage: UNK
     Dates: start: 2006, end: 2010
  8. AMOXIKLAV [Concomitant]
  9. LEVAQUIN [Concomitant]
     Dosage: UNK
     Dates: start: 200501
  10. CEPHALEXIN [Concomitant]
     Dosage: UNK
     Dates: start: 200309
  11. MACROBID [Concomitant]
     Dosage: UNK
     Dates: start: 200401
  12. OXAPROZIN [Concomitant]
     Dosage: UNK
     Dates: start: 2001

REACTIONS (2)
  - Cholelithiasis [None]
  - Cholecystitis acute [None]
